FAERS Safety Report 5578079-3 (Version None)
Quarter: 2007Q4

REPORT INFORMATION
  Report Type: 
  Country: None (occurrence: None)
  Receive Date: 20071231
  Receipt Date: 20071225
  Transmission Date: 20080405
  Serious: Yes (Hospitalization)
  Sender: FDA-Public Use
  Company Number: JP-ROCHE-492617

PATIENT
  Age: 7 Year
  Sex: Female
  Weight: 22 kg

DRUGS (5)
  1. TAMIFLU [Suspect]
     Indication: INFLUENZA
     Dosage: FORM: DRY SYRUP.
     Route: 048
     Dates: start: 20070220, end: 20070220
  2. KLARICID [Concomitant]
     Route: 048
     Dates: start: 20070219, end: 20070220
  3. MEDICON [Concomitant]
     Route: 048
     Dates: start: 20070219, end: 20070220
  4. BIOFERMIN [Concomitant]
     Route: 048
     Dates: start: 20070219, end: 20070220
  5. CALONAL [Concomitant]
     Dosage: FORM: FINE GRANULE
     Route: 048
     Dates: start: 20070220, end: 20070220

REACTIONS (1)
  - ABNORMAL BEHAVIOUR [None]
